FAERS Safety Report 9437225 (Version 1)
Quarter: 2013Q3

REPORT INFORMATION
  Report Type: Spontaneous
  Country: HR (occurrence: HR)
  Receive Date: 20130802
  Receipt Date: 20130802
  Transmission Date: 20140515
  Serious: Yes (Hospitalization)
  Sender: FDA-Public Use
  Company Number: PHHY2013HR076865

PATIENT
  Age: 13 Year
  Sex: Female

DRUGS (3)
  1. VALPROIC ACID [Suspect]
     Indication: RETT^S DISORDER
     Dosage: UNK UKN, (300 MG + 800 MG/DAY)
     Route: 048
  2. CARBAMAZEPINE [Suspect]
     Indication: RETT^S DISORDER
     Dosage: UNK UKN, (100 MG + 200 MG/DAY)
     Route: 048
  3. LAMOTRIGINE [Concomitant]
     Indication: RETT^S DISORDER
     Dosage: UNK UKN, (2 X 50 MG/DAY)
     Route: 048

REACTIONS (19)
  - Pancreatitis necrotising [Recovering/Resolving]
  - Pancreatitis acute [Recovering/Resolving]
  - Pancreatic enlargement [Recovering/Resolving]
  - Abdominal discomfort [Recovering/Resolving]
  - Abdominal pain [Recovering/Resolving]
  - Acute abdomen [Recovering/Resolving]
  - Vomiting [Recovering/Resolving]
  - Moaning [Recovering/Resolving]
  - Somnolence [Recovering/Resolving]
  - Communication disorder [Recovering/Resolving]
  - Malaise [Recovering/Resolving]
  - Duodenal ulcer [Recovering/Resolving]
  - Gastroduodenal haemorrhage [Unknown]
  - Pneumonia [Recovering/Resolving]
  - Pleural effusion [Recovering/Resolving]
  - Dyspnoea [Recovering/Resolving]
  - Hypocapnia [Recovering/Resolving]
  - Respiratory distress [Recovering/Resolving]
  - Haemorrhagic disorder [Recovering/Resolving]
